FAERS Safety Report 21530265 (Version 1)
Quarter: 2022Q4

REPORT INFORMATION
  Report Type: Spontaneous
  Country: US (occurrence: None)
  Receive Date: 20221028
  Receipt Date: 20221028
  Transmission Date: 20230113
  Serious: Yes (Life-Threatening, Hospitalization)
  Sender: FDA-Public Use
  Company Number: None

PATIENT

DRUGS (2)
  1. CEFEPIME HYDROCHLORIDE [Suspect]
     Active Substance: CEFEPIME HYDROCHLORIDE
  2. CIPROFLOXACIN [Suspect]
     Active Substance: CIPROFLOXACIN

REACTIONS (6)
  - Tubulointerstitial nephritis [None]
  - Renal tubular necrosis [None]
  - Nephrolithiasis [None]
  - Hydronephrosis [None]
  - Blood potassium increased [None]
  - Dialysis [None]

NARRATIVE: CASE EVENT DATE: 20210524
